FAERS Safety Report 7274878-0 (Version None)
Quarter: 2011Q1

REPORT INFORMATION
  Report Type: 
  Country: None (occurrence: None)
  Receive Date: 20110204
  Receipt Date: 20110131
  Transmission Date: 20110831
  Serious: Yes (Life-Threatening, Hospitalization)
  Sender: FDA-Public Use
  Company Number: GR-CUBIST-2011S1000059

PATIENT
  Age: 74 Year
  Sex: Male
  Weight: 82 kg

DRUGS (5)
  1. CUBICIN [Suspect]
     Route: 065
     Dates: start: 20101206, end: 20101211
  2. CUBICIN [Suspect]
     Indication: DIABETIC FOOT
     Route: 065
     Dates: start: 20101206, end: 20101211
  3. ALFUZOSIN [Concomitant]
     Indication: PRODUCT USED FOR UNKNOWN INDICATION
     Dates: end: 20101211
  4. ACCUPRON [Concomitant]
     Indication: PRODUCT USED FOR UNKNOWN INDICATION
     Dates: end: 20101211
  5. CEFALORIDINE [Concomitant]
     Indication: PRODUCT USED FOR UNKNOWN INDICATION
     Dates: end: 20101211

REACTIONS (2)
  - PULMONARY EMBOLISM [None]
  - HYPERTENSIVE CRISIS [None]
